FAERS Safety Report 24648700 (Version 1)
Quarter: 2024Q4

REPORT INFORMATION
  Report Type: Spontaneous
  Country: CN (occurrence: CN)
  Receive Date: 20241121
  Receipt Date: 20241121
  Transmission Date: 20250114
  Serious: Yes (Hospitalization)
  Sender: DAIICHI
  Company Number: CN-DSJP-DS-2024-106697-CN

PATIENT
  Age: 58 Year
  Sex: Male

DRUGS (5)
  1. TRASTUZUMAB DERUXTECAN [Suspect]
     Active Substance: TRASTUZUMAB DERUXTECAN
     Indication: Chemotherapy
     Dosage: 300 MG, ONCE EVERY 3 WK (EVERY 21 DAY)
     Route: 041
     Dates: start: 20240703
  2. TRASTUZUMAB DERUXTECAN [Suspect]
     Active Substance: TRASTUZUMAB DERUXTECAN
     Dosage: 300 MG, ONCE EVERY 3 WK (EVERY 21 DAY)
     Route: 041
     Dates: start: 20240724
  3. TRASTUZUMAB DERUXTECAN [Suspect]
     Active Substance: TRASTUZUMAB DERUXTECAN
     Dosage: 300 MG, ONCE EVERY 3 WK (EVERY 21 DAY)
     Route: 041
     Dates: start: 20240815, end: 20240815
  4. DISITAMAB VEDOTIN [Suspect]
     Active Substance: DISITAMAB VEDOTIN
     Indication: Chemotherapy
     Dosage: 120 MG, ONCE EVERY 3 WK (EVERY 21 DAY)
     Route: 041
     Dates: start: 20240926, end: 20240926
  5. PYROTINIB MALEATE [Concomitant]
     Active Substance: PYROTINIB MALEATE
     Indication: Chemotherapy
     Dosage: 400 MG, QD
     Route: 048
     Dates: start: 20240926, end: 20241015

REACTIONS (2)
  - Pneumonitis [Recovering/Resolving]
  - Pneumonia fungal [Recovering/Resolving]

NARRATIVE: CASE EVENT DATE: 20240930
